FAERS Safety Report 12385150 (Version 1)
Quarter: 2016Q2

REPORT INFORMATION
  Report Type: Spontaneous
  Country: ZA (occurrence: ZA)
  Receive Date: 20160519
  Receipt Date: 20160519
  Transmission Date: 20160815
  Serious: Yes (Hospitalization, Other)
  Sender: FDA-Public Use
  Company Number: ZA-PFIZER INC-2016250817

PATIENT
  Age: 36 Year
  Sex: Female

DRUGS (9)
  1. ALPHA /00169801/ [Concomitant]
     Indication: VITAMIN SUPPLEMENTATION
     Dosage: 3 TABLETS, WEEKLY
     Route: 048
     Dates: start: 2012, end: 201604
  2. TAREG [Concomitant]
     Active Substance: VALSARTAN
     Indication: HYPERTENSION
     Dosage: 160 MG, DAILY
     Route: 048
     Dates: start: 2013, end: 201604
  3. CARDURA XL [Suspect]
     Active Substance: DOXAZOSIN MESYLATE
     Indication: HYPERTENSION
     Dosage: 8 MG, DAILY
     Route: 048
     Dates: start: 2011, end: 201604
  4. AMLOC /00972402/ [Concomitant]
     Indication: HYPERTENSION
     Dosage: 10 MG, DAILY
     Route: 048
     Dates: start: 2013, end: 201604
  5. PREDNISONE. [Concomitant]
     Active Substance: PREDNISONE
     Indication: HYPERSENSITIVITY
     Dosage: 5 MG, DAILY
     Route: 048
     Dates: start: 2011, end: 201604
  6. NOVORAPID [Concomitant]
     Active Substance: INSULIN ASPART
     Indication: DIABETES MELLITUS
     Dosage: 6-104
     Route: 058
     Dates: start: 1990
  7. FLEXIPEN [Concomitant]
     Dosage: 104 AT NIGHT
  8. PROTAPHANE [Concomitant]
     Active Substance: INSULIN HUMAN
     Indication: DIABETES MELLITUS
     Dosage: 184 MORNING
     Route: 058
  9. ECOTRIN [Concomitant]
     Active Substance: ASPIRIN
     Indication: ANTICOAGULANT THERAPY
     Dosage: UNK, DAILY
     Route: 048
     Dates: start: 2011, end: 201604

REACTIONS (3)
  - Coma [Recovering/Resolving]
  - Hypotension [Unknown]
  - Blood glucose increased [Unknown]
